FAERS Safety Report 23408130 (Version 2)
Quarter: 2024Q1

REPORT INFORMATION
  Report Type: Report from Study
  Country: US (occurrence: US)
  Receive Date: 20240117
  Receipt Date: 20240206
  Transmission Date: 20240410
  Serious: Yes (Other)
  Sender: FDA-Public Use
  Company Number: US-ABBVIE-5587494

PATIENT
  Age: 26 Year
  Sex: Male

DRUGS (1)
  1. RINVOQ [Suspect]
     Active Substance: UPADACITINIB
     Indication: Colitis ulcerative
     Route: 048
     Dates: start: 20230112

REACTIONS (6)
  - Large intestine polyp [Unknown]
  - Colitis [Recovering/Resolving]
  - Large intestine erosion [Unknown]
  - Gastrointestinal mucosa hyperaemia [Unknown]
  - Nasopharyngitis [Recovering/Resolving]
  - Influenza [Recovering/Resolving]

NARRATIVE: CASE EVENT DATE: 20230112
